FAERS Safety Report 21209070 (Version 3)
Quarter: 2022Q4

REPORT INFORMATION
  Report Type: Report from Study
  Country: DO (occurrence: DO)
  Receive Date: 20220812
  Receipt Date: 20221010
  Transmission Date: 20230113
  Serious: Yes (Hospitalization, Other)
  Sender: FDA-Public Use
  Company Number: DO-ABBVIE-22K-279-4501715-00

PATIENT
  Sex: Female
  Weight: 78.017 kg

DRUGS (2)
  1. HUMIRA [Suspect]
     Active Substance: ADALIMUMAB
     Indication: Crohn^s disease
     Route: 058
     Dates: start: 20190724, end: 20220525
  2. HUMIRA [Suspect]
     Active Substance: ADALIMUMAB
     Route: 058
     Dates: start: 2022

REACTIONS (14)
  - Hypertensive crisis [Recovering/Resolving]
  - Seizure [Recovering/Resolving]
  - Tubulointerstitial nephritis [Recovering/Resolving]
  - Renal failure [Recovering/Resolving]
  - Haemoglobin decreased [Recovering/Resolving]
  - Anal abscess [Recovering/Resolving]
  - Infection [Recovering/Resolving]
  - Micturition disorder [Recovering/Resolving]
  - Oedema [Recovering/Resolving]
  - Blood creatinine increased [Recovering/Resolving]
  - Anal abscess [Recovering/Resolving]
  - Myalgia [Recovered/Resolved]
  - Gait disturbance [Recovered/Resolved]
  - Pain in extremity [Recovered/Resolved]

NARRATIVE: CASE EVENT DATE: 20220101
